FAERS Safety Report 5234319-1 (Version None)
Quarter: 2007Q1

REPORT INFORMATION
  Report Type: 
  Country: None (occurrence: None)
  Receive Date: 20070209
  Receipt Date: 20070126
  Transmission Date: 20070707
  Serious: Yes (Hospitalization)
  Sender: FDA-Public Use
  Company Number: US-BRISTOL-MYERS SQUIBB COMPANY-13660048

PATIENT
  Age: 63 Year
  Sex: Female

DRUGS (4)
  1. GLUCOPHAGE [Suspect]
     Dates: end: 20061127
  2. WARFARIN SODIUM [Suspect]
     Dates: start: 20060504
  3. LASIX [Suspect]
     Dates: end: 20061127
  4. BENICAR [Suspect]
     Dates: end: 20061127

REACTIONS (1)
  - RENAL FAILURE ACUTE [None]
